FAERS Safety Report 15506050 (Version 1)
Quarter: 2018Q4

REPORT INFORMATION
  Report Type: Spontaneous
  Country: CA (occurrence: CA)
  Receive Date: 20181016
  Receipt Date: 20181016
  Transmission Date: 20190205
  Serious: Yes (Other)
  Sender: FDA-Public Use
  Company Number: CA-ROCHE-2199431

PATIENT
  Age: 71 Year
  Sex: Female

DRUGS (1)
  1. ACTEMRA [Suspect]
     Active Substance: TOCILIZUMAB
     Indication: RHEUMATOID ARTHRITIS
     Dosage: FORMULATION : 400 MG AND 80 MG
     Route: 042

REACTIONS (2)
  - Muscular weakness [Unknown]
  - Fall [Unknown]

NARRATIVE: CASE EVENT DATE: 20181006
